FAERS Safety Report 7942342-9 (Version None)
Quarter: 2011Q4

REPORT INFORMATION
  Report Type: 
  Country: None (occurrence: None)
  Receive Date: 20111128
  Receipt Date: 20111117
  Transmission Date: 20120403
  Serious: Yes (Death, Disabling)
  Sender: FDA-Public Use
  Company Number: US-CELGENEUS-163-21880-11071105

PATIENT
  Sex: Male

DRUGS (12)
  1. PROTONIX [Concomitant]
     Route: 065
     Dates: start: 20070101
  2. REVLIMID [Suspect]
     Indication: MULTIPLE MYELOMA
     Dosage: 15 MILLIGRAM
     Route: 048
     Dates: start: 20110220, end: 20110503
  3. FENTANYL-100 [Concomitant]
     Route: 065
  4. PAXIL [Concomitant]
     Route: 065
  5. NEXIUM [Concomitant]
     Route: 065
  6. ASPIRIN [Concomitant]
     Route: 065
  7. CLONAZEPAM [Concomitant]
     Route: 065
  8. GABAPENTIN [Concomitant]
     Route: 065
     Dates: start: 20090101
  9. OXALIPLATIN [Concomitant]
     Indication: CHEMOTHERAPY
     Route: 065
     Dates: start: 20101001, end: 20110101
  10. HYDROMORPHONE HCL [Concomitant]
     Route: 065
  11. MS CONTIN [Concomitant]
     Indication: PAIN
     Route: 065
     Dates: start: 20100101
  12. GEMZAR [Concomitant]
     Indication: CHEMOTHERAPY
     Route: 065
     Dates: start: 20101001, end: 20110101

REACTIONS (3)
  - HYPOAESTHESIA [None]
  - HYPERHIDROSIS [None]
  - DEATH [None]
